FAERS Safety Report 8037945-X (Version None)
Quarter: 2012Q1

REPORT INFORMATION
  Report Type: 
  Country: None (occurrence: None)
  Receive Date: 20120111
  Receipt Date: 20120106
  Transmission Date: 20120608
  Serious: Yes (Hospitalization)
  Sender: FDA-Public Use
  Company Number: FR-ABBOTT-12P-056-0890322-00

PATIENT
  Age: 50 Year
  Sex: Male

DRUGS (9)
  1. LOPERAMIDE [Suspect]
     Indication: PRODUCT USED FOR UNKNOWN INDICATION
     Route: 048
  2. FENOFIBRATE [Suspect]
     Indication: PRODUCT USED FOR UNKNOWN INDICATION
     Dosage: 200MG (1 DF ONCE DAILY)
     Route: 048
  3. LEXOMIL ROCHE [Suspect]
     Indication: PRODUCT USED FOR UNKNOWN INDICATION
     Route: 048
  4. ABACAVIR SULFATE AND LAMIVUDINE [Suspect]
     Indication: HIV INFECTION
     Dosage: 600/300 (1 DF DAILY)
     Route: 048
  5. INDAPAMIDE [Suspect]
     Indication: PRODUCT USED FOR UNKNOWN INDICATION
     Route: 048
  6. MARAVIROC [Suspect]
     Indication: HIV INFECTION
     Dosage: 600MG DAILY, 300MG TWICE
     Route: 048
  7. CREON [Suspect]
     Indication: PRODUCT USED FOR UNKNOWN INDICATION
     Dosage: 25000 U, ONCE
     Route: 048
  8. NEXIUM [Suspect]
     Indication: PRODUCT USED FOR UNKNOWN INDICATION
     Route: 048
  9. IMOVANE [Suspect]
     Indication: PRODUCT USED FOR UNKNOWN INDICATION
     Route: 048

REACTIONS (4)
  - POLYURIA [None]
  - THIRST [None]
  - POLYDIPSIA [None]
  - DRY MOUTH [None]
